FAERS Safety Report 25486914 (Version 1)
Quarter: 2025Q2

REPORT INFORMATION
  Report Type: Spontaneous
  Country: US (occurrence: US)
  Receive Date: 20250627
  Receipt Date: 20250627
  Transmission Date: 20250716
  Serious: No
  Sender: ALK-ABELLO
  Company Number: US-ALK-ABELLO A/S-2025AA002154

PATIENT

DRUGS (19)
  1. PHLEUM PRATENSE POLLEN [Suspect]
     Active Substance: PHLEUM PRATENSE POLLEN
     Indication: Hypersensitivity
     Route: 058
     Dates: start: 20241213
  2. LOLIUM PERENNE POLLEN [Suspect]
     Active Substance: LOLIUM PERENNE POLLEN
     Indication: Hypersensitivity
     Route: 058
     Dates: start: 20241213
  3. PASPALUM NOTATUM POLLEN [Suspect]
     Active Substance: PASPALUM NOTATUM POLLEN
     Indication: Hypersensitivity
     Route: 058
     Dates: start: 20241213
  4. JUNIPERUS ASHEI POLLEN [Suspect]
     Active Substance: JUNIPERUS ASHEI POLLEN
     Indication: Hypersensitivity
     Route: 058
     Dates: start: 20241213
  5. CARYA OVATA POLLEN [Suspect]
     Active Substance: CARYA OVATA POLLEN
     Indication: Hypersensitivity
     Route: 058
     Dates: start: 20241213
  6. MORUS RUBRA POLLEN [Suspect]
     Active Substance: MORUS RUBRA POLLEN
     Indication: Hypersensitivity
     Route: 058
     Dates: start: 20241213
  7. IVA ANNUA POLLEN [Suspect]
     Active Substance: IVA ANNUA POLLEN
     Indication: Hypersensitivity
     Route: 058
     Dates: start: 20241213
  8. DERMATOPHAGOIDES PTERONYSSINUS [Suspect]
     Active Substance: DERMATOPHAGOIDES PTERONYSSINUS
     Indication: Hypersensitivity
     Route: 058
     Dates: start: 20241213
  9. DERMATOPHAGOIDES FARINAE [Suspect]
     Active Substance: DERMATOPHAGOIDES FARINAE
     Indication: Hypersensitivity
     Route: 058
     Dates: start: 20241213
  10. AMARANTHUS RETROFLEXUS POLLEN [Suspect]
     Active Substance: AMARANTHUS RETROFLEXUS POLLEN
     Indication: Hypersensitivity
     Route: 058
     Dates: start: 20241213
  11. AMBROSIA PSILOSTACHYA POLLEN [Suspect]
     Active Substance: AMBROSIA PSILOSTACHYA POLLEN
     Indication: Hypersensitivity
     Route: 058
     Dates: start: 20241213
  12. ARTEMISIA TRIDENTATA POLLEN [Suspect]
     Active Substance: ARTEMISIA TRIDENTATA POLLEN
     Indication: Hypersensitivity
     Route: 058
     Dates: start: 20241213
  13. ULMUS CRASSIFOLIA POLLEN [Suspect]
     Active Substance: ULMUS CRASSIFOLIA POLLEN
     Indication: Hypersensitivity
     Route: 058
     Dates: start: 20241213
  14. ALTERNARIA ALTERNATA [Suspect]
     Active Substance: ALTERNARIA ALTERNATA
     Indication: Hypersensitivity
     Route: 058
     Dates: start: 20241213
  15. PROCARDIA [Concomitant]
     Active Substance: NIFEDIPINE
     Indication: Blood pressure measurement
  16. TRELEGY ELLIPTA [Concomitant]
     Active Substance: FLUTICASONE FUROATE\UMECLIDINIUM BROMIDE\VILANTEROL TRIFENATATE
     Indication: Asthma
  17. BENADRYL [Concomitant]
     Active Substance: DIPHENHYDRAMINE HYDROCHLORIDE
     Indication: Product used for unknown indication
  18. SINGULAIR [Concomitant]
     Active Substance: MONTELUKAST SODIUM
     Indication: Product used for unknown indication
  19. ZYRTEC [Concomitant]
     Active Substance: CETIRIZINE HYDROCHLORIDE
     Indication: Product used for unknown indication

REACTIONS (3)
  - Injection site urticaria [Recovered/Resolved]
  - Injection site erythema [Recovered/Resolved]
  - Injection site swelling [Recovered/Resolved]

NARRATIVE: CASE EVENT DATE: 20250604
